FAERS Safety Report 20849045 (Version 2)
Quarter: 2022Q2

REPORT INFORMATION
  Report Type: Spontaneous
  Country: FR (occurrence: FR)
  Receive Date: 20220519
  Receipt Date: 20220608
  Transmission Date: 20220721
  Serious: Yes (Other)
  Sender: FDA-Public Use
  Company Number: DEX 2022-0073(0)

PATIENT

DRUGS (1)
  1. DEXMEDETOMIDINE HYDROCHLORIDE [Suspect]
     Active Substance: DEXMEDETOMIDINE HYDROCHLORIDE
     Indication: Sedative therapy
     Dosage: UNDILUTED, ADMINISTERED WITH MAD-300 IN STRAY DEVICE (4UG/KG)
     Route: 045

REACTIONS (3)
  - Heart rate decreased [Unknown]
  - Hypotension [Unknown]
  - Off label use [Unknown]
